FAERS Safety Report 5590649-5 (Version None)
Quarter: 2008Q1

REPORT INFORMATION
  Report Type: 
  Country: None (occurrence: None)
  Receive Date: 20080114
  Receipt Date: 20080109
  Transmission Date: 20080703
  Serious: Yes (Hospitalization)
  Sender: FDA-Public Use
  Company Number: DE-MERCK-0712DEU00035

PATIENT

DRUGS (3)
  1. ZETIA [Suspect]
     Route: 048
     Dates: start: 20071001, end: 20070101
  2. FLUPIRTINE MALEATE [Suspect]
     Route: 048
  3. [THERAPY UNSPECIFIED] [Concomitant]
     Route: 065

REACTIONS (2)
  - ADVERSE EVENT [None]
  - TRANSAMINASES INCREASED [None]
